FAERS Safety Report 7624977-6 (Version None)
Quarter: 2011Q3

REPORT INFORMATION
  Report Type: 
  Country: None (occurrence: None)
  Receive Date: 20110721
  Receipt Date: 20110713
  Transmission Date: 20111222
  Serious: Yes (Other)
  Sender: FDA-Public Use
  Company Number: US-BIOGENIDEC-2011BI021845

PATIENT
  Sex: Female

DRUGS (5)
  1. PILLS FOR BLOOD (NOS) [Concomitant]
  2. TYSABRI [Suspect]
     Route: 042
     Dates: start: 20090325, end: 20090624
  3. FLUID PILLS [Concomitant]
  4. TYSABRI [Suspect]
     Indication: MULTIPLE SCLEROSIS
     Route: 042
     Dates: start: 20091118
  5. PILLS FOR HEART (NOS) [Concomitant]

REACTIONS (2)
  - MUSCULOSKELETAL PAIN [None]
  - RENAL DISORDER [None]
